FAERS Safety Report 8625694-6 (Version None)
Quarter: 2012Q3

REPORT INFORMATION
  Report Type: 
  Country: None (occurrence: None)
  Receive Date: 20120827
  Receipt Date: 20120820
  Transmission Date: 20120928
  Serious: Yes (Life-Threatening, Hospitalization)
  Sender: FDA-Public Use
  Company Number: AT-ROCHE-1105585

PATIENT
  Sex: Female
  Weight: 71 kg

DRUGS (9)
  1. ASPIRIN [Concomitant]
     Dates: start: 20020401
  2. NEXIUM [Concomitant]
     Indication: PROPHYLAXIS
     Dates: start: 20020401
  3. DIAMICRON [Concomitant]
     Indication: TYPE 2 DIABETES MELLITUS
     Dates: start: 20060401
  4. MAGNOSOLV - GRANULAT [Concomitant]
     Dates: start: 20120514
  5. DILTIAZEM [Concomitant]
     Indication: HYPERTENSION
     Dates: start: 20080401
  6. LASIX [Concomitant]
     Indication: HYPERTENSION
     Dates: start: 20080401
  7. VISMODEGIB [Suspect]
     Indication: NEOPLASM MALIGNANT
     Route: 048
     Dates: start: 20120228
  8. TRAMADOL HYDROCHLORIDE [Concomitant]
     Dates: start: 20120615, end: 20120615
  9. TRAMADOL HYDROCHLORIDE [Concomitant]
     Indication: MUSCLE SPASMS
     Dates: start: 20120513, end: 20120514

REACTIONS (1)
  - CEREBROVASCULAR ACCIDENT [None]
